FAERS Safety Report 7515178-0 (Version None)
Quarter: 2011Q2

REPORT INFORMATION
  Report Type: 
  Country: None (occurrence: None)
  Receive Date: 20110601
  Receipt Date: 20100521
  Transmission Date: 20111010
  Serious: Yes (Other)
  Sender: FDA-Public Use
  Company Number: US-PFIZER INC-2010059375

PATIENT
  Sex: Female
  Weight: 53.061 kg

DRUGS (7)
  1. FEMARA [Concomitant]
     Indication: BREAST CANCER
     Dosage: UNK
  2. ACETYLSALICYLIC ACID [Concomitant]
     Dosage: 325 MG, UNK
  3. CHANTIX [Suspect]
     Indication: SMOKING CESSATION THERAPY
     Dosage: 0.5 MG, 1X/DAY
     Route: 048
     Dates: start: 20100505
  4. LEVOXYL [Concomitant]
     Indication: THYROID DISORDER
     Dosage: UNK
  5. LAMICTAL [Concomitant]
     Indication: ATTENTION DEFICIT/HYPERACTIVITY DISORDER
  6. LAMICTAL [Concomitant]
     Indication: BIPOLAR DISORDER
     Dosage: UNK
  7. CHANTIX [Suspect]
     Dosage: 1 MG, 2X/DAY
     Dates: start: 20100501

REACTIONS (6)
  - FATIGUE [None]
  - NAUSEA [None]
  - DIARRHOEA [None]
  - DEPRESSION [None]
  - VOMITING [None]
  - ABNORMAL DREAMS [None]
